FAERS Safety Report 6299807-8 (Version None)
Quarter: 2009Q3

REPORT INFORMATION
  Report Type: 
  Country: None (occurrence: None)
  Receive Date: 20090806
  Receipt Date: 20090730
  Transmission Date: 20100115
  Serious: Yes (Other)
  Sender: FDA-Public Use
  Company Number: US-ABBOTT-09P-163-0587184-00

PATIENT
  Sex: Female
  Weight: 57.658 kg

DRUGS (3)
  1. HUMIRA [Suspect]
     Indication: CROHN'S DISEASE
     Dates: start: 20090618, end: 20090618
  2. HUMIRA [Suspect]
     Indication: PSORIASIS
     Dates: start: 20090702, end: 20090702
  3. HUMIRA [Suspect]
     Dates: start: 20090716, end: 20090730

REACTIONS (7)
  - DIARRHOEA [None]
  - DYSURIA [None]
  - FLANK PAIN [None]
  - HEADACHE [None]
  - NAUSEA [None]
  - URINARY TRACT INFECTION [None]
  - VOMITING [None]
